FAERS Safety Report 21453031 (Version 1)
Quarter: 2022Q4

REPORT INFORMATION
  Report Type: Spontaneous
  Country: US (occurrence: None)
  Receive Date: 20221012
  Receipt Date: 20221012
  Transmission Date: 20230113
  Serious: No
  Sender: FDA-Public Use
  Company Number: None

PATIENT
  Age: 48 Year
  Sex: Male
  Weight: 74.84 kg

DRUGS (2)
  1. INFLECTRA [Suspect]
     Active Substance: INFLIXIMAB-DYYB
     Indication: Crohn^s disease
     Dosage: OTHER FREQUENCY : Q 4 WKS;?
     Route: 042
     Dates: start: 202209
  2. NUCALA [Suspect]
     Active Substance: MEPOLIZUMAB
     Indication: Crohn^s disease
     Dosage: OTHER FREQUENCY : Q 4 MONTHS;?
     Route: 042
     Dates: start: 202207

REACTIONS (1)
  - Cellulitis [None]
